FAERS Safety Report 12542174 (Version 1)
Quarter: 2016Q3

REPORT INFORMATION
  Report Type: Spontaneous
  Country: GB (occurrence: GB)
  Receive Date: 20160708
  Receipt Date: 20160708
  Transmission Date: 20161109
  Serious: Yes (Other)
  Sender: FDA-Public Use
  Company Number: GB-TEVA-673536ACC

PATIENT
  Sex: Male

DRUGS (9)
  1. PAROXETINE. [Suspect]
     Active Substance: PAROXETINE
     Indication: DEPRESSION
     Dosage: 20 MILLIGRAM DAILY; 20 MG, QD
     Route: 048
     Dates: start: 19970522
  2. PAROXETINE. [Suspect]
     Active Substance: PAROXETINE
     Dosage: 40 MILLIGRAM DAILY; 20 MG, BID
     Route: 048
     Dates: start: 19970701, end: 19980406
  3. SEROXAT [Suspect]
     Active Substance: PAROXETINE HYDROCHLORIDE
     Indication: DEPRESSION
     Dosage: 40 MILLIGRAM DAILY; 20 MG, BID
     Route: 048
     Dates: start: 199705, end: 19970902
  4. DIAZEPAM. [Concomitant]
     Active Substance: DIAZEPAM
     Indication: PRODUCT USED FOR UNKNOWN INDICATION
     Dosage: UNK
     Dates: start: 19980811, end: 20010326
  5. PAROXETINE. [Suspect]
     Active Substance: PAROXETINE
     Dosage: 10 MILLIGRAM DAILY; 10 MG, QD
     Route: 048
     Dates: start: 19980701
  6. PROPRANOLOL [Concomitant]
     Active Substance: PROPRANOLOL\PROPRANOLOL HYDROCHLORIDE
     Indication: PRODUCT USED FOR UNKNOWN INDICATION
     Dosage: UNK
  7. SEROXAT [Suspect]
     Active Substance: PAROXETINE HYDROCHLORIDE
     Indication: ANXIETY
     Dosage: 40 MILLIGRAM DAILY; 40 MG, QD
     Route: 048
     Dates: start: 19980330, end: 200009
  8. ZIRTEK [Concomitant]
     Active Substance: CETIRIZINE HYDROCHLORIDE
     Indication: SEASONAL ALLERGY
     Dosage: UNK
  9. PAROXETINE. [Suspect]
     Active Substance: PAROXETINE
     Dosage: UNK
     Route: 048
     Dates: start: 19970630, end: 19981104

REACTIONS (43)
  - Intentional self-injury [Unknown]
  - Nausea [Unknown]
  - Insomnia [Unknown]
  - Panic attack [Unknown]
  - Drug dependence [Unknown]
  - Syncope [Unknown]
  - Anxiety [Unknown]
  - Vomiting [Unknown]
  - Sensory disturbance [Unknown]
  - Mood swings [Unknown]
  - Feeling abnormal [Unknown]
  - Hypoacusis [Unknown]
  - Dysphagia [Unknown]
  - Withdrawal syndrome [Unknown]
  - Hyperhidrosis [Unknown]
  - Anger [Unknown]
  - Social avoidant behaviour [Unknown]
  - Suicidal ideation [Unknown]
  - Hyperventilation [Unknown]
  - Lethargy [Unknown]
  - Memory impairment [Unknown]
  - Disturbance in attention [Unknown]
  - Erectile dysfunction [Unknown]
  - Hypopnoea [Unknown]
  - Tearfulness [Unknown]
  - Confusional state [Unknown]
  - Diarrhoea [Unknown]
  - Fatigue [Unknown]
  - Influenza [Unknown]
  - Sleep disorder [Unknown]
  - Heart rate increased [Unknown]
  - Salivary hypersecretion [Unknown]
  - Adjustment disorder [Unknown]
  - Paraesthesia [Unknown]
  - Vertigo [Unknown]
  - Depression [Unknown]
  - Agitation [Unknown]
  - Dizziness [Unknown]
  - Nightmare [Unknown]
  - Tremor [Unknown]
  - Dysgeusia [Unknown]
  - Incoherent [Unknown]
  - Agoraphobia [Unknown]

NARRATIVE: CASE EVENT DATE: 19980109
